FAERS Safety Report 9268192 (Version 1)
Quarter: 2013Q2

REPORT INFORMATION
  Report Type: Spontaneous
  Country: US (occurrence: US)
  Receive Date: 20130502
  Receipt Date: 20130502
  Transmission Date: 20140414
  Serious: No
  Sender: FDA-Public Use
  Company Number: US-ALEXION-A201201767

PATIENT
  Sex: Male

DRUGS (1)
  1. SOLIRIS 300MG [Suspect]
     Indication: PAROXYSMAL NOCTURNAL HAEMOGLOBINURIA
     Dosage: UNK
     Route: 042

REACTIONS (8)
  - Localised infection [Unknown]
  - Haemoglobinuria [Unknown]
  - Weight increased [Unknown]
  - Urine output decreased [Unknown]
  - Blood count abnormal [Unknown]
  - Laceration [Unknown]
  - Oedema peripheral [Unknown]
  - Fatigue [Unknown]
